FAERS Safety Report 4807836-3 (Version None)
Quarter: 2005Q4

REPORT INFORMATION
  Report Type: 
  Country: None (occurrence: None)
  Receive Date: 20051020
  Receipt Date: 20051007
  Transmission Date: 20060501
  Serious: Yes (Hospitalization, Other)
  Sender: FDA-Public Use
  Company Number: 2005141112

PATIENT
  Age: 95 Year
  Sex: Female

DRUGS (7)
  1. ARTHROTEC [Suspect]
     Indication: ARTHRALGIA
     Dosage: 1 IN 1 D, ORAL
     Route: 048
     Dates: start: 20050701, end: 20050720
  2. AMILORIDE (AMILORIDE) [Suspect]
     Indication: CARDIAC FAILURE
     Dosage: 5 MG (5 MG, 1 IN 1 D), ORAL
     Route: 048
     Dates: start: 20050701, end: 20050720
  3. ALVEDON (PARACETAMOL) [Concomitant]
  4. DIGOXIN [Concomitant]
  5. FUROSEMIDE [Concomitant]
  6. TRIOBE (CYANOCOBALAMIN, FOLIC ACID, PYRIDOXINE) [Concomitant]
  7. OXASCAND (OXAZEPAM) [Concomitant]

REACTIONS (6)
  - DIARRHOEA [None]
  - DYSPNOEA [None]
  - GENERAL PHYSICAL HEALTH DETERIORATION [None]
  - PALLOR [None]
  - RASH GENERALISED [None]
  - X-RAY ABNORMAL [None]
